FAERS Safety Report 15938803 (Version 1)
Quarter: 2019Q1

REPORT INFORMATION
  Report Type: Spontaneous
  Country: US (occurrence: US)
  Receive Date: 20190208
  Receipt Date: 20190208
  Transmission Date: 20190417
  Serious: No
  Sender: FDA-Public Use
  Company Number: US-ROCHE-2199271

PATIENT
  Age: 58 Year
  Sex: Female
  Weight: 126.21 kg

DRUGS (11)
  1. MUCINEX [Concomitant]
     Active Substance: GUAIFENESIN
     Dosage: ONGOING:YES
     Route: 065
  2. PREDNISONE. [Concomitant]
     Active Substance: PREDNISONE
     Indication: VIRAL INFECTION
     Dosage: PRN
     Route: 065
  3. XOLAIR [Suspect]
     Active Substance: OMALIZUMAB
     Indication: CHRONIC SPONTANEOUS URTICARIA
     Dosage: SHOTS IN BACK OF BOTH OF HER LEFT AND RIGHT ARMS
     Route: 058
     Dates: start: 20181004
  4. TYLENOL [Concomitant]
     Active Substance: ACETAMINOPHEN
     Indication: PAIN
     Route: 065
  5. TESALON [Concomitant]
     Active Substance: BENZONATATE
     Indication: COUGH
     Dosage: ONGOING:YES
     Route: 065
  6. SUDAFED [Concomitant]
     Active Substance: PSEUDOEPHEDRINE HYDROCHLORIDE
     Route: 065
  7. XOLAIR [Suspect]
     Active Substance: OMALIZUMAB
     Indication: URTICARIA
  8. OSELTAMIVIR [Suspect]
     Active Substance: OSELTAMIVIR
     Indication: INFLUENZA
     Dosage: ONGOING :YES
     Route: 065
     Dates: start: 20181006
  9. BENADRYL [Concomitant]
     Active Substance: DIPHENHYDRAMINE HYDROCHLORIDE
  10. DUONEB [Concomitant]
     Active Substance: ALBUTEROL SULFATE\IPRATROPIUM BROMIDE
     Indication: DYSPNOEA
     Dosage: 3 TO 4 TIMES A DAY ;ONGOING: YES
     Route: 065
  11. CORTISONE [Concomitant]
     Active Substance: CORTISONE\HYDROCORTISONE
     Route: 065

REACTIONS (19)
  - Dyspnoea [Not Recovered/Not Resolved]
  - Pyrexia [Unknown]
  - Malaise [Unknown]
  - Sinus congestion [Not Recovered/Not Resolved]
  - Viral infection [Not Recovered/Not Resolved]
  - Diarrhoea [Recovered/Resolved]
  - Arthralgia [Unknown]
  - Fatigue [Unknown]
  - Musculoskeletal pain [Unknown]
  - Oropharyngeal pain [Not Recovered/Not Resolved]
  - Hypersomnia [Not Recovered/Not Resolved]
  - Headache [Unknown]
  - Pulmonary congestion [Not Recovered/Not Resolved]
  - Influenza like illness [Unknown]
  - Myalgia [Unknown]
  - Rash pruritic [Unknown]
  - Bronchial secretion retention [Not Recovered/Not Resolved]
  - Productive cough [Unknown]
  - Pain [Unknown]

NARRATIVE: CASE EVENT DATE: 20181004
